FAERS Safety Report 8269210-X (Version None)
Quarter: 2012Q1

REPORT INFORMATION
  Report Type: 
  Country: None (occurrence: None)
  Receive Date: 20120327
  Receipt Date: 20090529
  Transmission Date: 20120608
  Serious: Yes (Other)
  Sender: FDA-Public Use
  Company Number: PHEH2009US05517

PATIENT
  Sex: Female

DRUGS (1)
  1. GLEEVEC [Suspect]
     Dosage: UNK

REACTIONS (4)
  - VISION BLURRED [None]
  - CATARACT [None]
  - PERIORBITAL OEDEMA [None]
  - CATARACT OPERATION [None]
